FAERS Safety Report 17736582 (Version 1)
Quarter: 2020Q2

REPORT INFORMATION
  Report Type: Report from Study
  Country: US (occurrence: US)
  Receive Date: 20200501
  Receipt Date: 20200501
  Transmission Date: 20200714
  Serious: Yes (Life-Threatening, Hospitalization)
  Sender: FDA-Public Use
  Company Number: US-ACTELION-A-US2020-204763

PATIENT
  Sex: Female
  Weight: 73.47 kg

DRUGS (1)
  1. OPSUMIT [Suspect]
     Active Substance: MACITENTAN
     Indication: PULMONARY ARTERIAL HYPERTENSION
     Dosage: 10 MG, QD
     Route: 048

REACTIONS (8)
  - Medical induction of coma [Unknown]
  - Corneal dystrophy [Not Recovered/Not Resolved]
  - Fall [Unknown]
  - Decreased appetite [Recovering/Resolving]
  - Conjunctivitis [Not Recovered/Not Resolved]
  - Coronavirus infection [Unknown]
  - Weight decreased [Recovering/Resolving]
  - Arthropathy [Unknown]
